FAERS Safety Report 5089514-1 (Version None)
Quarter: 2006Q3

REPORT INFORMATION
  Report Type: 
  Country: None (occurrence: None)
  Receive Date: 20060822
  Receipt Date: 20060810
  Transmission Date: 20061208
  Serious: Yes (Other)
  Sender: FDA-Public Use
  Company Number: 2006076737

PATIENT
  Sex: Male

DRUGS (1)
  1. ZITHROMAX [Suspect]
     Indication: PHARYNGITIS
     Dates: start: 20060602

REACTIONS (6)
  - AGEUSIA [None]
  - APTYALISM [None]
  - CANDIDIASIS [None]
  - DRY MOUTH [None]
  - TONGUE DRY [None]
  - WEIGHT DECREASED [None]
